FAERS Safety Report 6991404-1 (Version None)
Quarter: 2010Q3

REPORT INFORMATION
  Report Type: 
  Country: None (occurrence: None)
  Receive Date: 20100916
  Receipt Date: 20090818
  Transmission Date: 20110219
  Serious: No
  Sender: FDA-Public Use
  Company Number: US-WYE-H10639309

PATIENT
  Sex: Female
  Weight: 88.08 kg

DRUGS (7)
  1. PRISTIQ [Suspect]
     Indication: DEPRESSION
     Route: 048
     Dates: start: 20090801
  2. PREMARIN [Concomitant]
  3. VITAMIN B-12 [Concomitant]
  4. MULTI-VITAMINS [Concomitant]
  5. LEVOXYL [Concomitant]
  6. SIMVASTATIN [Concomitant]
  7. DIOVAN [Concomitant]

REACTIONS (2)
  - DECREASED APPETITE [None]
  - MUSCLE SPASMS [None]
